FAERS Safety Report 7138038-6 (Version None)
Quarter: 2010Q4

REPORT INFORMATION
  Report Type: 
  Country: None (occurrence: None)
  Receive Date: 20101206
  Receipt Date: 20101130
  Transmission Date: 20110411
  Serious: Yes (Other)
  Sender: FDA-Public Use
  Company Number: US-AMGEN-USASP2010007075

PATIENT

DRUGS (3)
  1. NPLATE [Suspect]
     Indication: THROMBOCYTOPENIA
     Dosage: UNK
     Dates: start: 20100903
  2. NPLATE [Suspect]
     Dosage: 1 A?G/KG, UNK
     Dates: start: 20100913
  3. CORTICOSTEROIDS [Concomitant]
     Indication: THROMBOCYTOPENIA

REACTIONS (1)
  - PLATELET COUNT INCREASED [None]
